FAERS Safety Report 12394524 (Version 1)
Quarter: 2016Q2

REPORT INFORMATION
  Report Type: Spontaneous
  Country: US (occurrence: US)
  Receive Date: 20160523
  Receipt Date: 20160523
  Transmission Date: 20160815
  Serious: No
  Sender: FDA-Public Use
  Company Number: US-PFIZER INC-2016245488

PATIENT
  Sex: Male

DRUGS (1)
  1. LYRICA [Suspect]
     Active Substance: PREGABALIN
     Dosage: UNK

REACTIONS (6)
  - Speech disorder [Unknown]
  - Feeling abnormal [Unknown]
  - Libido disorder [Unknown]
  - Dyspnoea [Unknown]
  - Oedema peripheral [Unknown]
  - Swelling [Unknown]
